FAERS Safety Report 20143742 (Version 1)
Quarter: 2021Q4

REPORT INFORMATION
  Report Type: Spontaneous
  Country: US (occurrence: US)
  Receive Date: 20211203
  Receipt Date: 20211203
  Transmission Date: 20220303
  Serious: Yes (Other)
  Sender: FDA-Public Use
  Company Number: US-GLAXOSMITHKLINE-US2021GSK248515

PATIENT
  Sex: Male

DRUGS (12)
  1. ZANTAC [Suspect]
     Active Substance: RANITIDINE HYDROCHLORIDE
     Indication: Dyspepsia
     Dosage: 75 MG, 3-5 TIMES PER WEEK
     Route: 065
     Dates: start: 198312, end: 202006
  2. ZANTAC [Suspect]
     Active Substance: RANITIDINE HYDROCHLORIDE
     Indication: Gastric ulcer
     Dosage: 150 MG, 3-5 TIMES PER WEEK
     Route: 065
     Dates: start: 198312, end: 202006
  3. ZANTAC [Suspect]
     Active Substance: RANITIDINE HYDROCHLORIDE
     Indication: Dyspepsia
     Dosage: 75 MG, 3-5 TIMES PER WEEK
     Route: 065
     Dates: start: 198312, end: 202006
  4. ZANTAC [Suspect]
     Active Substance: RANITIDINE HYDROCHLORIDE
     Indication: Gastric ulcer
     Dosage: 150 MG, 3-5 TIMES PER WEEK
     Route: 065
     Dates: start: 198312, end: 202006
  5. RANITIDINE HYDROCHLORIDE [Suspect]
     Active Substance: RANITIDINE HYDROCHLORIDE
     Indication: Dyspepsia
     Dosage: 75 MG, 3-5 TIMES PER WEEK
     Route: 065
     Dates: start: 198312, end: 202006
  6. RANITIDINE HYDROCHLORIDE [Suspect]
     Active Substance: RANITIDINE HYDROCHLORIDE
     Indication: Gastric ulcer
     Dosage: 150 MG, 3-5 TIMES PER WEEK
     Route: 065
     Dates: start: 198312, end: 202006
  7. RANITIDINE HYDROCHLORIDE [Suspect]
     Active Substance: RANITIDINE HYDROCHLORIDE
     Indication: Dyspepsia
     Dosage: 75 MG, 3-5 TIMES PER WEEK
     Route: 065
     Dates: start: 198312, end: 202006
  8. RANITIDINE HYDROCHLORIDE [Suspect]
     Active Substance: RANITIDINE HYDROCHLORIDE
     Indication: Gastric ulcer
     Dosage: 150 MG, 3-5 TIMES PER WEEK
     Route: 065
     Dates: start: 198312, end: 202006
  9. RANITIDINE [Suspect]
     Active Substance: RANITIDINE
     Indication: Dyspepsia
     Dosage: 75 MG, 3-5 TIMES PER WEEK
     Route: 065
     Dates: start: 198312, end: 202006
  10. RANITIDINE [Suspect]
     Active Substance: RANITIDINE
     Indication: Gastric ulcer
     Dosage: 150 MG, 3-5 TIMES PER WEEK
     Route: 065
     Dates: start: 198312, end: 202006
  11. RANITIDINE [Suspect]
     Active Substance: RANITIDINE
     Indication: Dyspepsia
     Dosage: 75 MG, 3-5 TIMES PER WEEK
     Route: 065
     Dates: start: 198312, end: 202006
  12. RANITIDINE [Suspect]
     Active Substance: RANITIDINE
     Indication: Gastric ulcer
     Dosage: 150 MG, 3-5 TIMES PER WEEK
     Route: 065
     Dates: start: 198312, end: 202006

REACTIONS (1)
  - Prostate cancer [Unknown]
